FAERS Safety Report 8422604-1 (Version None)
Quarter: 2012Q2

REPORT INFORMATION
  Report Type: 
  Country: None (occurrence: None)
  Receive Date: 20120604
  Receipt Date: 20111119
  Transmission Date: 20120825
  Serious: Yes (Other)
  Sender: FDA-Public Use
  Company Number: AUR-APL-2011-05056

PATIENT
  Sex: Female
  Weight: 95.2554 kg

DRUGS (4)
  1. CITALOPRAM HYDROBROMIDE [Concomitant]
  2. GABAPENTIN [Suspect]
     Indication: PAIN IN JAW
     Dosage: 900 MG (300 MG, 3 IN 1 D), ORAL
  3. AMITRIPTYLINE HCL [Concomitant]
  4. VERAPAMIL [Concomitant]

REACTIONS (1)
  - DRUG INEFFECTIVE [None]
